FAERS Safety Report 5216691-1 (Version None)
Quarter: 2006Q4

REPORT INFORMATION
  Report Type: 
  Country: None (occurrence: None)
  Receive Date: 20061130
  Receipt Date: 20060516
  Transmission Date: 20070319
  Serious: Yes (Other)
  Sender: FDA-Public Use
  Company Number: US200604001066

PATIENT
  Sex: Male

DRUGS (3)
  1. ZYPREXA [Suspect]
     Dosage: 1.25 MG
     Route: 065
  2. PROZAC [Concomitant]
  3. LIPITOR [Concomitant]

REACTIONS (1)
  - PANCREATITIS ACUTE [None]
